FAERS Safety Report 25947226 (Version 2)
Quarter: 2025Q4

REPORT INFORMATION
  Report Type: Report from Study
  Country: TH (occurrence: TH)
  Receive Date: 20251022
  Receipt Date: 20251223
  Transmission Date: 20260118
  Serious: Yes (Death, Hospitalization)
  Sender: EXELIXIS
  Company Number: TH-IPSEN Group, Research and Development-2025-25883

PATIENT
  Age: 65 Year
  Sex: Male

DRUGS (1)
  1. CABOMETYX [Suspect]
     Active Substance: CABOZANTINIB S-MALATE
     Indication: Hepatocellular carcinoma
     Dosage: 60 MG, QD
     Route: 048
     Dates: start: 20250902, end: 202510

REACTIONS (4)
  - Abdominal distension [Unknown]
  - Jaundice [Unknown]
  - Antimicrobial susceptibility test resistant [Fatal]
  - Adverse event [Unknown]

NARRATIVE: CASE EVENT DATE: 20251005
